FAERS Safety Report 13582942 (Version 1)
Quarter: 2017Q2

REPORT INFORMATION
  Report Type: Spontaneous
  Country: BR (occurrence: BR)
  Receive Date: 20170525
  Receipt Date: 20170525
  Transmission Date: 20170830
  Serious: Yes (Hospitalization, Other)
  Sender: FDA-Public Use
  Company Number: BR-009507513-1705BRA012745

PATIENT
  Age: 68 Year
  Sex: Female
  Weight: 60 kg

DRUGS (3)
  1. LEVOID [Concomitant]
     Active Substance: LEVOTHYROXINE
     Indication: THYROID DISORDER
     Dosage: 75 MICROGRAM, QD, IN FASTING
     Route: 048
  2. JANUVIA [Suspect]
     Active Substance: SITAGLIPTIN PHOSPHATE
     Indication: DIABETES MELLITUS
     Dosage: 50 MG, TWICE A DAY (1 TABLET IN THE MORNING AND 1 TABLET IN THE AFTERNOON)
     Route: 048
  3. INDAPEN [Concomitant]
     Active Substance: INDAPAMIDE
     Indication: HYPERTENSION
     Dosage: UNK, QD
     Route: 048

REACTIONS (5)
  - Arterial catheterisation [Unknown]
  - Arterial occlusive disease [Unknown]
  - Breast calcifications [Not Recovered/Not Resolved]
  - Off label use [Unknown]
  - Vascular graft [Recovering/Resolving]

NARRATIVE: CASE EVENT DATE: 201703
